FAERS Safety Report 10385921 (Version 1)
Quarter: 2014Q3

REPORT INFORMATION
  Report Type: Spontaneous
  Country: GB (occurrence: None)
  Receive Date: 20140812
  Receipt Date: 20140812
  Transmission Date: 20150326
  Serious: Yes (Life-Threatening)
  Sender: FDA-Public Use
  Company Number: FK201403207

PATIENT
  Age: 45 Year
  Sex: Female
  Weight: 90 kg

DRUGS (4)
  1. PROPOFOL. [Suspect]
     Active Substance: PROPOFOL
     Indication: ANAESTHESIA
     Dosage: 200MG 1 IN 1D, INTRAVENOUS
     Route: 042
     Dates: start: 20140717, end: 20140717
  2. TRACRIUM [Suspect]
     Active Substance: ATRACURIUM BESYLATE
     Indication: ANAESTHESIA
     Dosage: 40MG, 1 IN 1D, INTRAVENOUS
     Route: 042
     Dates: start: 20140717, end: 20140717
  3. DEXAMETHASONE. [Suspect]
     Active Substance: DEXAMETHASONE
     Indication: ANAESTHESIA
     Route: 042
     Dates: start: 20140717, end: 20140717
  4. ALFENTANIL [Suspect]
     Active Substance: ALFENTANIL
     Indication: ANAESTHESIA
     Route: 042
     Dates: start: 20140717, end: 20140717

REACTIONS (3)
  - Anaphylactic reaction [None]
  - Rash generalised [None]
  - Hypotension [None]

NARRATIVE: CASE EVENT DATE: 20140717
